FAERS Safety Report 4649890-8 (Version None)
Quarter: 2005Q2

REPORT INFORMATION
  Report Type: 
  Country: None (occurrence: None)
  Receive Date: 20050502
  Receipt Date: 20050218
  Transmission Date: 20051028
  Serious: Yes (Hospitalization, Disabling)
  Sender: FDA-Public Use
  Company Number: US-MERCK-0502USA02447

PATIENT
  Age: 69 Year
  Sex: Male

DRUGS (3)
  1. VIOXX [Suspect]
     Indication: ARTHRITIS
     Route: 048
     Dates: start: 20030429
  2. ALLEGRA [Concomitant]
     Route: 065
  3. HYTRIN [Concomitant]
     Route: 065

REACTIONS (7)
  - ANAEMIA [None]
  - DUODENAL ULCER PERFORATION [None]
  - HYPERKALAEMIA [None]
  - HYPOXIA [None]
  - PAIN [None]
  - PNEUMONIA ASPIRATION [None]
  - URINARY RETENTION POSTOPERATIVE [None]
